FAERS Safety Report 9100072 (Version 2)
Quarter: 2016Q1

REPORT INFORMATION
  Report Type: Report from Study
  Country: DE (occurrence: DE)
  Receive Date: 20130215
  Receipt Date: 20160301
  Transmission Date: 20160526
  Serious: Yes (Other)
  Sender: FDA-Public Use
  Company Number: DE-TEVA-386810USA

PATIENT
  Age: 75 Year
  Sex: Female

DRUGS (8)
  1. ACICLOVIR [Concomitant]
     Active Substance: ACYCLOVIR
     Dosage: 400 UNKNOWN DAILY;
  2. BENDAMUSTINE [Suspect]
     Active Substance: BENDAMUSTINE
     Indication: B-CELL LYMPHOMA
     Route: 042
     Dates: start: 20120319
  3. L-THYROXIN [Concomitant]
     Active Substance: LEVOTHYROXINE SODIUM
     Dosage: 75 MICROGRAM DAILY;
  4. HCT [Concomitant]
     Active Substance: HYDROCHLOROTHIAZIDE
     Dosage: 25 UNKNOWN DAILY;
  5. BENDAMUSTINE [Suspect]
     Active Substance: BENDAMUSTINE
     Dosage: 240 UNK, CYCLIC (DAY 1 AND 8)
     Route: 042
     Dates: start: 20120424
  6. ACE-HEMMER [Concomitant]
     Dosage: 50 DOSAGE FORMS DAILY;
  7. BISOPROLOL [Concomitant]
     Active Substance: BISOPROLOL
     Dosage: (1-0-1/2)
  8. TAVEGIL [Concomitant]
     Active Substance: CLEMASTINE FUMARATE
     Route: 048

REACTIONS (2)
  - Aspartate aminotransferase increased [Not Recovered/Not Resolved]
  - Gamma-glutamyltransferase increased [Not Recovered/Not Resolved]

NARRATIVE: CASE EVENT DATE: 20120508
